FAERS Safety Report 14091241 (Version 2)
Quarter: 2018Q2

REPORT INFORMATION
  Report Type: Report from Study
  Country: None (occurrence: US)
  Receive Date: 20171016
  Receipt Date: 20180515
  Transmission Date: 20180711
  Serious: Yes (Other)
  Sender: FDA-Public Use
  Company Number: US-ABBVIE-16K-163-1753837-00

PATIENT
  Age: 30 Year
  Sex: Female
  Weight: 57.66 kg

DRUGS (3)
  1. PRENATAL VITAMIN [Concomitant]
     Active Substance: VITAMINS
     Indication: PRODUCT USED FOR UNKNOWN INDICATION
  2. HUMIRA [Suspect]
     Active Substance: ADALIMUMAB
     Route: 058
  3. HUMIRA [Suspect]
     Active Substance: ADALIMUMAB
     Indication: COLITIS ULCERATIVE
     Route: 058

REACTIONS (5)
  - Umbilical cord abnormality [Unknown]
  - Injection site urticaria [Recovering/Resolving]
  - Exposure during pregnancy [Unknown]
  - Subchorionic haematoma [Not Recovered/Not Resolved]
  - Normal newborn [Unknown]

NARRATIVE: CASE EVENT DATE: 20161114
